FAERS Safety Report 5843189-X (Version None)
Quarter: 2008Q3

REPORT INFORMATION
  Report Type: 
  Country: None (occurrence: None)
  Receive Date: 20080813
  Receipt Date: 20080731
  Transmission Date: 20090109
  Serious: Yes (Other)
  Sender: FDA-Public Use
  Company Number: PHBS2008DE05310

PATIENT
  Age: 10 Year
  Sex: Female

DRUGS (1)
  1. CYCLOSPORINE [Suspect]
     Indication: GLOMERULONEPHRITIS MINIMAL LESION

REACTIONS (1)
  - TYPE 1 DIABETES MELLITUS [None]
